FAERS Safety Report 12185192 (Version 2)
Quarter: 2016Q2

REPORT INFORMATION
  Report Type: Report from Study
  Country: US (occurrence: US)
  Receive Date: 20160316
  Receipt Date: 20160413
  Transmission Date: 20160815
  Serious: Yes (Death, Hospitalization)
  Sender: FDA-Public Use
  Company Number: US-SEATTLE GENETICS-2016SGN00363

PATIENT

DRUGS (1)
  1. BRENTUXIMAB VEDOTIN [Suspect]
     Active Substance: BRENTUXIMAB VEDOTIN
     Indication: ACUTE GRAFT VERSUS HOST DISEASE
     Dosage: 0.8 MG/KG, Q2WEEKS
     Route: 042
     Dates: start: 20160222, end: 20160222

REACTIONS (3)
  - Graft versus host disease [Fatal]
  - Thrombotic microangiopathy [Fatal]
  - Systemic candida [Fatal]

NARRATIVE: CASE EVENT DATE: 20160223
